FAERS Safety Report 18663281 (Version 2)
Quarter: 2021Q1

REPORT INFORMATION
  Report Type: Spontaneous
  Country: US (occurrence: US)
  Receive Date: 20201224
  Receipt Date: 20210111
  Transmission Date: 20210419
  Serious: Yes (Hospitalization, Other)
  Sender: FDA-Public Use
  Company Number: US-ASTELLAS-2020US018706AA

PATIENT
  Age: 84 Year
  Sex: Female

DRUGS (8)
  1. DETROL [Concomitant]
     Active Substance: TOLTERODINE TARTRATE
     Indication: HYPERTONIC BLADDER
     Dosage: 2 MG, ONCE DAILY (I ONLY TAKE ONE A DAY)
     Route: 048
  2. ATORVASTATIN [Suspect]
     Active Substance: ATORVASTATIN
     Indication: TYPE 2 DIABETES MELLITUS
     Dosage: UNK, ALTERNATE DAY (LAST 2 EVERY OTHER DAY)
     Route: 065
  3. ATORVASTATIN [Suspect]
     Active Substance: ATORVASTATIN
     Dosage: 10 MG, ALTERNATE DAY (I BEEN TAKING THEM EVERY OTHER DAY)
     Route: 065
  4. VESICARE [Suspect]
     Active Substance: SOLIFENACIN SUCCINATE
     Indication: PRODUCT USED FOR UNKNOWN INDICATION
     Dosage: UNK UNK, UNKNOWN FREQ.
     Route: 065
  5. DETROL [Concomitant]
     Active Substance: TOLTERODINE TARTRATE
     Dosage: 2 MG, ONCE DAILY (2 TABLETS BY MOUTH DAILY)
     Route: 048
  6. ATORVASTATIN [Suspect]
     Active Substance: ATORVASTATIN
     Dosage: 10 MG, ONCE DAILY (10MG OVAL TABLET; ONE TABLET ONCE A DAY BY MOUTH)
     Route: 048
  7. ATORVASTATIN [Suspect]
     Active Substance: ATORVASTATIN
     Dosage: 10 MG, ONCE DAILY [TAKE ONE TABLET PO QHS [EVERY BEDTIME]]
     Route: 048
  8. METFORMIN [Concomitant]
     Active Substance: METFORMIN HYDROCHLORIDE
     Indication: TYPE 2 DIABETES MELLITUS
     Dosage: UNK, UNKNOWN FREQ.
     Route: 065

REACTIONS (6)
  - Urinary incontinence [Unknown]
  - Off label use [Unknown]
  - Urinary tract infection [Recovering/Resolving]
  - Intentional product misuse [Unknown]
  - Gait disturbance [Recovering/Resolving]
  - Sepsis [Recovering/Resolving]

NARRATIVE: CASE EVENT DATE: 20200211
